FAERS Safety Report 6399408-7 (Version None)
Quarter: 2009Q4

REPORT INFORMATION
  Report Type: 
  Country: None (occurrence: None)
  Receive Date: 20091014
  Receipt Date: 20091002
  Transmission Date: 20100525
  Serious: Yes (Death, Life-Threatening, Hospitalization)
  Sender: FDA-Public Use
  Company Number: JP-AMGEN-US352570

PATIENT
  Sex: Male

DRUGS (7)
  1. ENBREL [Suspect]
     Indication: RHEUMATOID ARTHRITIS
     Route: 058
     Dates: start: 20090422, end: 20090613
  2. PREDONINE [Suspect]
     Indication: RHEUMATOID ARTHRITIS
     Route: 048
     Dates: start: 20010821, end: 20090613
  3. RHEUMATREX [Suspect]
     Indication: RHEUMATOID ARTHRITIS
     Route: 048
     Dates: start: 19930101, end: 20090601
  4. HYPEN [Concomitant]
     Indication: PAIN
     Route: 048
     Dates: start: 20010821, end: 20090613
  5. ISCOTIN [Concomitant]
     Route: 048
     Dates: start: 20090425, end: 20090613
  6. FOLIAMIN [Concomitant]
     Route: 048
     Dates: start: 20050830, end: 20090613
  7. RIMATIL [Concomitant]
     Indication: RHEUMATOID ARTHRITIS
     Route: 048
     Dates: start: 20010821, end: 20090422

REACTIONS (4)
  - CHEST PAIN [None]
  - PLEURAL EFFUSION [None]
  - PNEUMONIA [None]
  - SKIN CANCER METASTATIC [None]
